FAERS Safety Report 8136120-8 (Version None)
Quarter: 2012Q1

REPORT INFORMATION
  Report Type: 
  Country: None (occurrence: None)
  Receive Date: 20120214
  Receipt Date: 20120206
  Transmission Date: 20120608
  Serious: No
  Sender: FDA-Public Use
  Company Number: US-COVIDIEN/TYCO HEALTHCARE/MALLINCKRODT-T201200569

PATIENT
  Sex: Female

DRUGS (12)
  1. ASPIRIN [Concomitant]
     Dosage: 81 MG, QD
     Route: 048
  2. PEPCID [Concomitant]
     Dosage: 20 MG, BID
     Route: 048
  3. VICODIN [Concomitant]
     Indication: PAIN
     Dosage: 5/500; FOUR TABLETS,  BID
  4. ANTI DIARRHEA [Concomitant]
     Dosage: BID
     Route: 048
  5. FENTANYL-100 [Suspect]
     Indication: PAIN
     Dosage: 75 UG/HR Q 3 DAYS
     Route: 062
     Dates: start: 20120109
  6. CYMBALTA [Concomitant]
     Indication: FIBROMYALGIA
     Dosage: 200 MG, QD
     Route: 048
  7. LASIX [Concomitant]
     Indication: FLUID RETENTION
     Dosage: 20 MG, QOD
     Route: 048
  8. VITAMIN C                          /00008001/ [Concomitant]
     Dosage: 1TABLET, QD
     Route: 048
  9. POTASSIUM [Concomitant]
     Dosage: 20 MEQ, QD
  10. TRAZODONE HCL [Concomitant]
     Indication: INSOMNIA
     Dosage: 100 MG, QD AT HS
     Route: 048
  11. CO Q 10 [Concomitant]
     Dosage: 200 UNK, QD
     Route: 048
  12. VITAMIN B COMPLEX CAP [Concomitant]
     Dosage: 1 TABLET , QD
     Route: 048

REACTIONS (5)
  - DRUG EFFECT DELAYED [None]
  - WITHDRAWAL SYNDROME [None]
  - DRUG INEFFECTIVE [None]
  - CRYING [None]
  - FORMICATION [None]
